FAERS Safety Report 7610805-1 (Version None)
Quarter: 2011Q3

REPORT INFORMATION
  Report Type: 
  Country: None (occurrence: None)
  Receive Date: 20110715
  Receipt Date: 20110712
  Transmission Date: 20111222
  Serious: Yes (Death, Other)
  Sender: FDA-Public Use
  Company Number: US-CELGENEUS-163-21880-11061774

PATIENT
  Sex: Female
  Weight: 51.302 kg

DRUGS (5)
  1. REVLIMID [Suspect]
     Indication: AMYLOIDOSIS
     Dosage: 25 MILLIGRAM
     Route: 048
     Dates: start: 20100907, end: 20101001
  2. PAIN MEDS [Concomitant]
     Route: 065
  3. DIABETIC MEDS [Concomitant]
     Route: 065
  4. CLONOPIN [Concomitant]
     Route: 065
  5. DECADRON [Concomitant]
     Indication: AMYLOIDOSIS
     Route: 065

REACTIONS (2)
  - CARDIAC FAILURE CONGESTIVE [None]
  - AMYLOIDOSIS [None]
